FAERS Safety Report 7985560-6 (Version None)
Quarter: 2011Q4

REPORT INFORMATION
  Report Type: 
  Country: None (occurrence: None)
  Receive Date: 20111216
  Receipt Date: 20111213
  Transmission Date: 20120403
  Serious: Yes (Life-Threatening, Hospitalization, Other)
  Sender: FDA-Public Use
  Company Number: DE-JNJFOC-20111109237

PATIENT
  Sex: Male
  Weight: 93 kg

DRUGS (3)
  1. PREDNISONE [Concomitant]
     Route: 065
  2. FENTANYL [Concomitant]
     Route: 062
  3. ZYTIGA [Suspect]
     Indication: PROSTATE CANCER METASTATIC
     Route: 048
     Dates: end: 20111101

REACTIONS (5)
  - BLOOD LACTATE DEHYDROGENASE INCREASED [None]
  - METASTASES TO MENINGES [None]
  - HAEMATOMA [None]
  - RHABDOMYOLYSIS [None]
  - THROMBOCYTOPENIA [None]
